FAERS Safety Report 6138031-6 (Version None)
Quarter: 2009Q1

REPORT INFORMATION
  Report Type: 
  Country: None (occurrence: None)
  Receive Date: 20090331
  Receipt Date: 20090130
  Transmission Date: 20090719
  Serious: Yes (Death)
  Sender: FDA-Public Use
  Company Number: US-TYCO HEALTHCARE/MALLINCKRODT-T200900490

PATIENT
  Age: 47 Year
  Sex: Female

DRUGS (5)
  1. FLUOXETINE [Suspect]
     Route: 048
  2. OXYCODONE HCL AND ACETAMINOPHEN [Suspect]
     Route: 048
  3. BUPROPION HCL [Suspect]
     Route: 048
  4. CYPROHEPTADINE HCL [Suspect]
     Route: 048
  5. LORAZEPAM [Suspect]
     Route: 048

REACTIONS (11)
  - AGGRESSION [None]
  - AGITATION [None]
  - CARDIAC ARREST [None]
  - COMPLETED SUICIDE [None]
  - CONVULSION [None]
  - HALLUCINATION [None]
  - HYPOTENSION [None]
  - LETHARGY [None]
  - OVERDOSE [None]
  - RESTLESSNESS [None]
  - VOMITING [None]
